FAERS Safety Report 8533278-3 (Version None)
Quarter: 2012Q3

REPORT INFORMATION
  Report Type: 
  Country: None (occurrence: None)
  Receive Date: 20120724
  Receipt Date: 20120611
  Transmission Date: 20120928
  Serious: Yes (Hospitalization)
  Sender: FDA-Public Use
  Company Number: US-PERRIGO-12US005104

PATIENT
  Sex: Female
  Weight: 77.098 kg

DRUGS (9)
  1. OXYCONTIN [Concomitant]
     Indication: BACK PAIN
     Dosage: UNK
     Route: 065
     Dates: start: 20120525
  2. VISTARIL [Concomitant]
     Indication: ANXIETY
     Dosage: UNK
     Route: 065
  3. METFORMIN HYDROCHLORIDE [Concomitant]
     Indication: DIABETES MELLITUS
     Dosage: UNK
     Route: 065
     Dates: start: 20110601
  4. VISTARIL [Concomitant]
     Indication: PANIC ATTACK
  5. WELLBUTRIN [Concomitant]
     Indication: DEPRESSION
     Dosage: UNK
     Route: 065
  6. KLONOPIN [Concomitant]
     Indication: ANXIETY
     Dosage: UNK
     Route: 065
  7. SOMA [Concomitant]
     Indication: MUSCLE RELAXANT THERAPY
     Dosage: UNK
     Route: 065
  8. KLONOPIN [Concomitant]
     Indication: PANIC ATTACK
  9. POLYETHYLENE GLYCOL [Suspect]
     Indication: CONSTIPATION
     Dosage: 17 G, QD
     Route: 048
     Dates: start: 20120428, end: 20120504

REACTIONS (6)
  - SWELLING FACE [None]
  - DELIRIUM [None]
  - PRURITUS [None]
  - HYPERSENSITIVITY [None]
  - PHARYNGEAL OEDEMA [None]
  - PULMONARY THROMBOSIS [None]
